FAERS Safety Report 7970042-8 (Version None)
Quarter: 2011Q4

REPORT INFORMATION
  Report Type: 
  Country: None (occurrence: None)
  Receive Date: 20111122
  Receipt Date: 20110718
  Transmission Date: 20120403
  Serious: No
  Sender: FDA-Public Use
  Company Number: PHHY2011US47481

PATIENT
  Age: 59 Year
  Sex: Male

DRUGS (13)
  1. BACLOFEN [Concomitant]
  2. FLOMAX [Concomitant]
  3. LAMICTAL [Concomitant]
  4. METFORMIN HCL [Concomitant]
  5. VITAMIN B12 [Concomitant]
  6. VITAMIN D [Concomitant]
  7. MIRTAZAPINE [Concomitant]
  8. OMEPRAZOLE [Concomitant]
  9. PRAVASTATIN [Concomitant]
  10. GILENYA [Suspect]
     Indication: MULTIPLE SCLEROSIS
     Dosage: 0.5 MG, DAILY, ORAL
     Route: 048
     Dates: start: 20110418
  11. IMIPRAMINOXIDE HYDROCHLORIDE (IMIPRAMINOXIDE HYDROCHLORIDE) [Concomitant]
  12. CARAFATE [Concomitant]
  13. LISINOPRIL [Concomitant]

REACTIONS (1)
  - PAIN IN EXTREMITY [None]
